FAERS Safety Report 7560631-7 (Version None)
Quarter: 2011Q2

REPORT INFORMATION
  Report Type: 
  Country: None (occurrence: None)
  Receive Date: 20110617
  Receipt Date: 20110617
  Transmission Date: 20111010
  Serious: No
  Sender: FDA-Public Use
  Company Number: None

PATIENT
  Age: 67 Year
  Sex: Female
  Weight: 70.7611 kg

DRUGS (1)
  1. HYDROCODONE BITARTRATE AND ACETAMINOPHEN [Suspect]
     Indication: EYE PAIN
     Dosage: 5-500 1 TAB Q6HRS BY MOUTH
     Route: 048
     Dates: start: 20110604

REACTIONS (1)
  - NO THERAPEUTIC RESPONSE [None]
